FAERS Safety Report 8912373 (Version 2)
Quarter: 2012Q4

REPORT INFORMATION
  Report Type: 
  Country: AT (occurrence: GB)
  Receive Date: 20121115
  Receipt Date: 20121119
  Transmission Date: 20130627
  Serious: Yes (Other)
  Sender: FDA-Public Use
  Company Number: AT-PFIZER INC-2012282216

PATIENT
  Age: 63 Year
  Sex: Female

DRUGS (2)
  1. SUNITINIB MALATE [Suspect]
     Indication: RENAL CELL CARCINOMA
     Dosage: 50 mg/day (Schedule 4/2)
     Dates: start: 200904
  2. SUNITINIB MALATE [Suspect]
     Dosage: 37.5 mg/day (Schedule 4/2)

REACTIONS (2)
  - Haematuria [Unknown]
  - Palmar-plantar erythrodysaesthesia syndrome [Unknown]
